FAERS Safety Report 5485529-X (Version None)
Quarter: 2007Q4

REPORT INFORMATION
  Report Type: 
  Country: None (occurrence: None)
  Receive Date: 20071010
  Receipt Date: 20071010
  Transmission Date: 20080405
  Serious: Yes (Other)
  Sender: FDA-Public Use
  Company Number: None

PATIENT
  Sex: Male
  Weight: 83.9154 kg

DRUGS (2)
  1. ZOMETA [Suspect]
     Indication: METASTASES TO BONE
     Dosage: 4MG EVERY 28 DAYS IV DRIP
     Route: 041
     Dates: start: 20030110, end: 20070802
  2. AREDIA [Suspect]
     Indication: METASTASES TO BONE
     Dosage: 90 EVERY 28 DAYS IV DRIP
     Route: 041
     Dates: start: 20010801, end: 20021213

REACTIONS (1)
  - OSTEONECROSIS [None]
